FAERS Safety Report 8896747 (Version 1)
Quarter: 2012Q4

REPORT INFORMATION
  Report Type: 
  Country: US (occurrence: US)
  Receive Date: 20121108
  Receipt Date: 20121108
  Transmission Date: 20130627
  Serious: No
  Sender: FDA-Public Use
  Company Number: US-AMGEN-USASP2012026667

PATIENT
  Age: 31 Year
  Sex: Female
  Weight: 45.35 kg

DRUGS (1)
  1. ENBREL [Suspect]
     Indication: JUVENILE ARTHRITIS
     Dosage: 50 mg, qwk
     Dates: start: 20080801

REACTIONS (4)
  - Stomatitis [Unknown]
  - Glossodynia [Unknown]
  - Glossitis [Unknown]
  - Sinusitis [Unknown]
